FAERS Safety Report 7542358-0 (Version None)
Quarter: 2011Q2

REPORT INFORMATION
  Report Type: 
  Country: None (occurrence: None)
  Receive Date: 20110524
  Receipt Date: 20110207
  Transmission Date: 20111010
  Serious: No
  Sender: FDA-Public Use
  Company Number: 027076

PATIENT
  Sex: Male
  Weight: 113.3993 kg

DRUGS (5)
  1. ALLOPURINOL [Concomitant]
  2. METOPROLOL TARTRATE [Concomitant]
  3. TRAZODONE HCL [Concomitant]
  4. AMLODIPINE [Concomitant]
  5. CIMZIA [Suspect]
     Indication: PSORIATIC ARTHROPATHY
     Dosage: 400 MG 1X/2 WEEKS, TWO 200 MG SHOTS SUBCUTANEOUS
     Route: 058
     Dates: start: 20101201

REACTIONS (4)
  - SKIN IRRITATION [None]
  - DRY SKIN [None]
  - SKIN HAEMORRHAGE [None]
  - ERYTHEMA [None]
